FAERS Safety Report 12189497 (Version 3)
Quarter: 2016Q3

REPORT INFORMATION
  Report Type: Report from Study
  Country: US (occurrence: US)
  Receive Date: 20160318
  Receipt Date: 20160715
  Transmission Date: 20161109
  Serious: Yes (Other)
  Sender: FDA-Public Use
  Company Number: US-AMGEN-USASL2016030930

PATIENT
  Age: 53 Year
  Sex: Female
  Weight: 52.15 kg

DRUGS (4)
  1. ENBREL [Suspect]
     Active Substance: ETANERCEPT
     Indication: PSORIATIC ARTHROPATHY
     Dosage: 50 MG, EVERY SEVEN DAYS
     Route: 058
     Dates: start: 20160211, end: 20160217
  2. METHOTREXATE. [Concomitant]
     Active Substance: METHOTREXATE
     Dosage: UNK
  3. ENBREL [Suspect]
     Active Substance: ETANERCEPT
     Dosage: 50 MG, EVERY SEVEN DAYS
     Route: 058
     Dates: start: 20160501
  4. NAPROXEN. [Concomitant]
     Active Substance: NAPROXEN
     Dosage: UNK

REACTIONS (9)
  - Vomiting [Recovered/Resolved]
  - Feeling abnormal [Unknown]
  - Psoriatic arthropathy [Recovering/Resolving]
  - Respiratory tract congestion [Recovered/Resolved]
  - Headache [Recovered/Resolved]
  - Herpes zoster [Recovered/Resolved]
  - Insomnia [Recovered/Resolved]
  - Dehydration [Recovered/Resolved]
  - Influenza [Recovered/Resolved]

NARRATIVE: CASE EVENT DATE: 2016
